FAERS Safety Report 15938648 (Version 1)
Quarter: 2019Q1

REPORT INFORMATION
  Report Type: Spontaneous
  Country: US (occurrence: US)
  Receive Date: 20190208
  Receipt Date: 20190208
  Transmission Date: 20190417
  Serious: No
  Sender: FDA-Public Use
  Company Number: US-SA-2019SA033832

PATIENT
  Age: 57 Year
  Sex: Female

DRUGS (14)
  1. ASMANEX [Concomitant]
     Active Substance: MOMETASONE FUROATE
  2. ALLOPURINOL. [Concomitant]
     Active Substance: ALLOPURINOL
  3. EPIPEN [Concomitant]
     Active Substance: EPINEPHRINE
  4. INDAPAMIDE. [Concomitant]
     Active Substance: INDAPAMIDE
  5. INDOMETHACIN [INDOMETACIN] [Concomitant]
     Active Substance: INDOMETHACIN
  6. MONTELUKAST [Concomitant]
     Active Substance: MONTELUKAST SODIUM
  7. SIMVASTATIN. [Concomitant]
     Active Substance: SIMVASTATIN
  8. COLCHICINE. [Concomitant]
     Active Substance: COLCHICINE
  9. VENTOLINE [SALBUTAMOL] [Concomitant]
     Active Substance: ALBUTEROL SULFATE
  10. ALBUTEROL [SALBUTAMOL] [Concomitant]
     Active Substance: ALBUTEROL
  11. CETRIZINE [Concomitant]
     Active Substance: CETIRIZINE HYDROCHLORIDE
  12. HYDROXYCHLOROQUINE [HYDROXYCHLOROQUINE SULFATE] [Concomitant]
     Active Substance: HYDROXYCHLOROQUINE SULFATE
  13. DUPIXENT [Suspect]
     Active Substance: DUPILUMAB
     Indication: ASTHMA
     Dosage: 2 DF, QOW
     Route: 058
     Dates: start: 20181212
  14. TRIAMCINOLONE [Concomitant]
     Active Substance: TRIAMCINOLONE

REACTIONS (1)
  - Product use issue [Unknown]
